FAERS Safety Report 10487360 (Version 2)
Quarter: 2014Q4

REPORT INFORMATION
  Report Type: Spontaneous
  Country: US (occurrence: US)
  Receive Date: 20141001
  Receipt Date: 20141013
  Transmission Date: 20150528
  Serious: Yes (Hospitalization)
  Sender: FDA-Public Use
  Company Number: US-ACTELION-A-US2014-105695

PATIENT
  Age: 52 Year
  Sex: Female

DRUGS (1)
  1. OPSUMIT [Suspect]
     Active Substance: MACITENTAN
     Indication: COR PULMONALE CHRONIC
     Dosage: 10 MG, QD
     Route: 048
     Dates: start: 20140620

REACTIONS (8)
  - Cardiac failure congestive [Unknown]
  - Decreased appetite [Unknown]
  - Abdominal rigidity [Unknown]
  - Thrombosis [Unknown]
  - Diarrhoea [Unknown]
  - White blood cell count decreased [Unknown]
  - Constipation [Unknown]
  - Oedema peripheral [Unknown]

NARRATIVE: CASE EVENT DATE: 20140915
